FAERS Safety Report 10158282 (Version 1)
Quarter: 2014Q2

REPORT INFORMATION
  Report Type: Spontaneous
  Country: IT (occurrence: IT)
  Receive Date: 20140507
  Receipt Date: 20140507
  Transmission Date: 20141212
  Serious: Yes (Other)
  Sender: FDA-Public Use
  Company Number: IT-ACTAVIS-2014-09158

PATIENT
  Age: 6 Year
  Sex: Female

DRUGS (2)
  1. ACYCLOVIR (UNKNOWN) [Suspect]
     Indication: VARICELLA
     Dosage: 440 MG, DAILY
     Route: 048
     Dates: start: 20140411, end: 20140416
  2. CETIRIZINE [Concomitant]
     Indication: PRODUCT USED FOR UNKNOWN INDICATION
     Dosage: UNK
     Route: 065

REACTIONS (2)
  - Angioedema [Recovered/Resolved]
  - Urticaria [Recovered/Resolved]
